FAERS Safety Report 9125167 (Version 1)
Quarter: 2013Q1

REPORT INFORMATION
  Report Type: Spontaneous
  Country: CN (occurrence: CN)
  Receive Date: 20130117
  Receipt Date: 20130117
  Transmission Date: 20140127
  Serious: Yes (Other)
  Sender: FDA-Public Use
  Company Number: CN-JNJFOC-20130104250

PATIENT
  Sex: 0

DRUGS (12)
  1. RISPERDAL [Suspect]
     Indication: PRODUCT USED FOR UNKNOWN INDICATION
     Route: 065
  2. HALOPERIDOL [Suspect]
     Indication: PRODUCT USED FOR UNKNOWN INDICATION
     Route: 065
  3. CLOZAPINE [Suspect]
     Indication: PRODUCT USED FOR UNKNOWN INDICATION
     Route: 065
  4. ARIPIPRAZOLE [Suspect]
     Indication: PRODUCT USED FOR UNKNOWN INDICATION
     Route: 065
  5. LITHIUM CARBONATE [Suspect]
     Indication: PRODUCT USED FOR UNKNOWN INDICATION
     Route: 065
  6. PERPHENAZINE [Suspect]
     Indication: PRODUCT USED FOR UNKNOWN INDICATION
     Route: 065
  7. SODIUM VALPROATE [Suspect]
     Indication: PRODUCT USED FOR UNKNOWN INDICATION
     Route: 065
  8. ZIPRASIDONE [Suspect]
     Indication: PRODUCT USED FOR UNKNOWN INDICATION
     Route: 065
  9. CLONAZEPAM [Suspect]
     Indication: PRODUCT USED FOR UNKNOWN INDICATION
     Route: 065
  10. CHLORPROMAZINE [Suspect]
     Indication: PRODUCT USED FOR UNKNOWN INDICATION
     Route: 065
  11. QUETIAPINE [Suspect]
     Indication: PRODUCT USED FOR UNKNOWN INDICATION
     Route: 065
  12. ESTAZOLAM [Suspect]
     Indication: PRODUCT USED FOR UNKNOWN INDICATION
     Route: 065

REACTIONS (22)
  - Orthostatic hypotension [Unknown]
  - Nodal arrhythmia [Unknown]
  - Urinary retention [Unknown]
  - Generalised oedema [Unknown]
  - Ataxia [Unknown]
  - Gait disturbance [Unknown]
  - Tremor [Unknown]
  - Akathisia [Unknown]
  - White blood cell count decreased [Unknown]
  - Vision blurred [Unknown]
  - Galactorrhoea [Unknown]
  - Nasal obstruction [Unknown]
  - Urinary incontinence [Unknown]
  - Dyspnoea [Unknown]
  - Constipation [Unknown]
  - White blood cell count decreased [Unknown]
  - Salivary hypersecretion [Unknown]
  - Somnolence [Unknown]
  - Dizziness [Unknown]
  - Weight increased [Unknown]
  - Nausea [Unknown]
  - Myotonia [Unknown]
